FAERS Safety Report 20340145 (Version 3)
Quarter: 2022Q4

REPORT INFORMATION
  Report Type: Spontaneous
  Country: CA (occurrence: CA)
  Receive Date: 20220117
  Receipt Date: 20221115
  Transmission Date: 20230113
  Serious: Yes (Other)
  Sender: FDA-Public Use
  Company Number: CA-SAMSUNG BIOEPIS-SB-2022-00561

PATIENT
  Age: 70 Year
  Sex: Female
  Weight: 76 kg

DRUGS (4)
  1. INFLIXIMAB [Suspect]
     Active Substance: INFLIXIMAB
     Indication: Psoriatic arthropathy
     Route: 042
  2. PANTOPRAZOLE MAGNESIUM [Concomitant]
     Active Substance: PANTOPRAZOLE MAGNESIUM
     Indication: Gastrooesophageal reflux disease
     Route: 065
  3. ACETAMINOPHEN [Concomitant]
     Active Substance: ACETAMINOPHEN
     Indication: Product used for unknown indication
     Route: 048
  4. DIPHENHYDRAMINE [Concomitant]
     Active Substance: DIPHENHYDRAMINE
     Indication: Product used for unknown indication
     Route: 048

REACTIONS (17)
  - Contusion [Recovered/Resolved]
  - Joint injury [Recovered/Resolved]
  - Urticaria [Recovered/Resolved]
  - Abdominal discomfort [Recovered/Resolved]
  - Arthralgia [Recovered/Resolved]
  - Bladder disorder [Recovered/Resolved]
  - Chest pain [Recovered/Resolved]
  - Chills [Recovered/Resolved]
  - Oropharyngeal pain [Recovered/Resolved]
  - Pain [Recovered/Resolved]
  - Pyrexia [Recovered/Resolved]
  - Weight decreased [Recovered/Resolved]
  - Condition aggravated [Recovered/Resolved]
  - Cyst [Recovered/Resolved]
  - Pain in extremity [Recovered/Resolved]
  - Intentional product use issue [Recovered/Resolved]
  - Off label use [Recovered/Resolved]
